FAERS Safety Report 13850493 (Version 1)
Quarter: 2017Q3

REPORT INFORMATION
  Report Type: Spontaneous
  Country: IT (occurrence: IT)
  Receive Date: 20170809
  Receipt Date: 20170809
  Transmission Date: 20171127
  Serious: Yes (Other)
  Sender: FDA-Public Use
  Company Number: IT-TEVA-787583ACC

PATIENT
  Age: 21 Year
  Sex: Female
  Weight: 56 kg

DRUGS (2)
  1. FILGRASTIM [Suspect]
     Active Substance: FILGRASTIM
     Indication: THALASSAEMIA BETA
     Dosage: 10 MICROGRAM/KG DAILY; EVERY MORNING FROM DAY 1 TO DAY 4
     Route: 058
  2. MOZOBIL [Suspect]
     Active Substance: PLERIXAFOR
     Indication: THALASSAEMIA BETA
     Dosage: 40 MICROG/KG, ON DAY 4, 12 HRS AFTER ADMINISTRATION OF FILGRASTIM.
     Route: 065

REACTIONS (4)
  - Bone pain [Recovered/Resolved]
  - Anaemia [Recovered/Resolved]
  - Fatigue [Recovered/Resolved]
  - Thrombocytopenia [Recovered/Resolved]
